FAERS Safety Report 16122038 (Version 1)
Quarter: 2019Q1

REPORT INFORMATION
  Report Type: Spontaneous
  Country: US (occurrence: US)
  Receive Date: 20190327
  Receipt Date: 20190327
  Transmission Date: 20190418
  Serious: No
  Sender: FDA-Public Use
  Company Number: US-PFIZER INC-2019129548

PATIENT
  Age: 58 Year
  Sex: Female
  Weight: 54.16 kg

DRUGS (2)
  1. ZOLOFT [Suspect]
     Active Substance: SERTRALINE HYDROCHLORIDE
     Indication: ANXIETY
     Dosage: UNK, 1X/DAY (1/2 100 MG TABLET BY MOUTH ONCE A DAY)
     Route: 048
  2. ZOLOFT [Suspect]
     Active Substance: SERTRALINE HYDROCHLORIDE
     Indication: DEPRESSION
     Dosage: UNK, 1X/DAY (1/2 25 MG TABLET BY MOUTH ONCE A DAY)
     Route: 048

REACTIONS (2)
  - Irritability [Not Recovered/Not Resolved]
  - Feeling abnormal [Unknown]
